FAERS Safety Report 5168552-4 (Version None)
Quarter: 2006Q4

REPORT INFORMATION
  Report Type: 
  Country: None (occurrence: None)
  Receive Date: 20061208
  Receipt Date: 20061120
  Transmission Date: 20070319
  Serious: Yes (Hospitalization)
  Sender: FDA-Public Use
  Company Number: FR-MERCK-0611FRA00049

PATIENT
  Age: 56 Year
  Sex: Female
  Weight: 38 kg

DRUGS (2)
  1. CANCIDAS [Suspect]
     Indication: SYSTEMIC CANDIDA
     Route: 042
     Dates: start: 20061013, end: 20061013
  2. CANCIDAS [Suspect]
     Route: 042
     Dates: start: 20061014, end: 20061016

REACTIONS (1)
  - HEPATITIS [None]
